FAERS Safety Report 8191490-X (Version None)
Quarter: 2012Q1

REPORT INFORMATION
  Report Type: 
  Country: None (occurrence: None)
  Receive Date: 20120307
  Receipt Date: 20120305
  Transmission Date: 20120608
  Serious: No
  Sender: FDA-Public Use
  Company Number: US-B.I. PHARMACEUTICALS,INC./RIDGEFIELD-2012-BP-04224BP

PATIENT
  Age: 60 Year
  Sex: Female

DRUGS (2)
  1. METFORMIN [Concomitant]
  2. TRADJENTA [Suspect]

REACTIONS (3)
  - DRUG INTOLERANCE [None]
  - NAUSEA [None]
  - ABDOMINAL DISCOMFORT [None]
